FAERS Safety Report 9602534 (Version 2)
Quarter: 2013Q4

REPORT INFORMATION
  Report Type: Spontaneous
  Country: US (occurrence: US)
  Receive Date: 20131007
  Receipt Date: 20131120
  Transmission Date: 20140711
  Serious: No
  Sender: FDA-Public Use
  Company Number: US-PFIZER INC-2013282698

PATIENT
  Age: 76 Year
  Sex: Female
  Weight: 60.8 kg

DRUGS (2)
  1. PREMARIN [Suspect]
     Indication: UTERINE DISORDER
     Dosage: 0.5 G, ONCE
     Route: 067
     Dates: start: 201309, end: 201309
  2. VITAMIN B12 [Concomitant]
     Indication: PERNICIOUS ANAEMIA
     Dosage: UNK,  MONTHLY

REACTIONS (3)
  - Vulvovaginal discomfort [Recovered/Resolved]
  - Vulvovaginal pruritus [Recovered/Resolved]
  - Drug ineffective [Unknown]
